FAERS Safety Report 10017848 (Version 1)
Quarter: 2014Q1

REPORT INFORMATION
  Report Type: Spontaneous
  Country: US (occurrence: US)
  Receive Date: 20140318
  Receipt Date: 20140318
  Transmission Date: 20141002
  Serious: Yes (Other)
  Sender: FDA-Public Use
  Company Number: US-BRISTOL-MYERS SQUIBB COMPANY-20411013

PATIENT
  Age: 43 Year
  Sex: Female
  Weight: 102.94 kg

DRUGS (5)
  1. ABILIFY TABS 15 MG [Suspect]
  2. EFFEXOR XR [Concomitant]
     Dosage: 2 IN THE MORNING
  3. CYMBALTA [Concomitant]
  4. METFORMIN [Concomitant]
  5. LOSARTAN POTASSIUM [Concomitant]

REACTIONS (4)
  - Mania [Unknown]
  - Depression [Unknown]
  - Suicidal ideation [Unknown]
  - Fear [Unknown]
